FAERS Safety Report 5463328-2 (Version None)
Quarter: 2007Q3

REPORT INFORMATION
  Report Type: 
  Country: None (occurrence: None)
  Receive Date: 20070920
  Receipt Date: 20070613
  Transmission Date: 20080115
  Serious: Yes (Hospitalization)
  Sender: FDA-Public Use
  Company Number: FRWYE331418SEP07

PATIENT
  Age: 75 Year
  Sex: Male

DRUGS (2)
  1. EFFEXOR XR [Suspect]
     Route: 048
     Dates: start: 20070413
  2. XANAX [Concomitant]
     Dosage: UNKNOWN
     Dates: start: 20070413

REACTIONS (4)
  - BLADDER DILATATION [None]
  - PROSTATIC ADENOMA [None]
  - PROSTATITIS [None]
  - URINARY RETENTION [None]
